FAERS Safety Report 7493903-5 (Version None)
Quarter: 2011Q2

REPORT INFORMATION
  Report Type: 
  Country: None (occurrence: None)
  Receive Date: 20110520
  Receipt Date: 20110516
  Transmission Date: 20111010
  Serious: Yes (Death)
  Sender: FDA-Public Use
  Company Number: GB-ROCHE-777564

PATIENT
  Age: 62 Year
  Sex: Female
  Weight: 61 kg

DRUGS (8)
  1. SIMVASTATIN [Concomitant]
  2. NAPROXEN [Concomitant]
  3. AMLODIPINE [Concomitant]
  4. CITALOPRAM HYDROBROMIDE [Concomitant]
  5. LISINOPRIL [Concomitant]
  6. ACTEMRA [Suspect]
     Indication: RHEUMATOID ARTHRITIS
     Route: 042
     Dates: start: 20101125, end: 20110203
  7. FERROUS SULFATE TAB [Concomitant]
  8. TRAMADOL HCL [Concomitant]

REACTIONS (1)
  - PANCREATITIS ACUTE [None]
